FAERS Safety Report 8188410-0 (Version None)
Quarter: 2012Q1

REPORT INFORMATION
  Report Type: 
  Country: None (occurrence: None)
  Receive Date: 20120306
  Receipt Date: 20120224
  Transmission Date: 20120608
  Serious: Yes (Hospitalization)
  Sender: FDA-Public Use
  Company Number: PHHY2012AU016985

PATIENT
  Sex: Male

DRUGS (1)
  1. CLOZARIL [Suspect]
     Dosage: 150 MG, UNK
     Route: 048
     Dates: start: 20010709

REACTIONS (5)
  - PNEUMONIA [None]
  - WHITE BLOOD CELL COUNT INCREASED [None]
  - MALAISE [None]
  - PLATELET COUNT ABNORMAL [None]
  - NEUTROPHIL COUNT INCREASED [None]
